FAERS Safety Report 14659838 (Version 1)
Quarter: 2018Q1

REPORT INFORMATION
  Report Type: Report from Study
  Country: ES (occurrence: ES)
  Receive Date: 20180320
  Receipt Date: 20180320
  Transmission Date: 20180509
  Serious: Yes (Hospitalization)
  Sender: FDA-Public Use
  Company Number: ES-PFIZER INC-2018111134

PATIENT
  Age: 55 Year
  Sex: Male
  Weight: 73 kg

DRUGS (7)
  1. 5-FU /00098801/ [Suspect]
     Active Substance: FLUOROURACIL
     Dosage: 756 MG, EVERY 2 WEEKS (Q2W)
     Route: 040
     Dates: start: 20150615, end: 20150615
  2. LEUCOVORIN /00566701/ [Suspect]
     Active Substance: LEUCOVORIN
     Indication: RECTAL CANCER
     Dosage: 756 MG, EVERY 2 WEEKS
     Route: 065
     Dates: start: 20150615, end: 20150615
  3. 5-FU /00098801/ [Suspect]
     Active Substance: FLUOROURACIL
     Indication: RECTAL CANCER
     Dosage: 4536 MG, EVERY 2 WEEKS (Q2W)
     Route: 042
     Dates: start: 20150615, end: 20150615
  4. 5-FU /00098801/ [Suspect]
     Active Substance: FLUOROURACIL
     Dosage: 4536 MG, EVERY 2 WEEKS (Q2W)
     Route: 042
     Dates: start: 20150617, end: 20150617
  5. OXALIPLATIN. [Suspect]
     Active Substance: OXALIPLATIN
     Indication: RECTAL CANCER
     Dosage: 160.65 MG, EVERY 2 WEEKS
     Route: 042
     Dates: start: 20150615, end: 20150615
  6. AFLIBERCEPT [Suspect]
     Active Substance: AFLIBERCEPT
     Indication: RECTAL CANCER
     Dosage: 320 MG, EVERY 2 WEEKS (Q2W)
     Route: 042
     Dates: start: 20150615, end: 20150615
  7. CAPECITABINE. [Suspect]
     Active Substance: CAPECITABINE
     Indication: RECTAL CANCER
     Route: 065

REACTIONS (1)
  - Angina pectoris [Recovered/Resolved]

NARRATIVE: CASE EVENT DATE: 20150617
